FAERS Safety Report 4445887-1 (Version None)
Quarter: 2004Q3

REPORT INFORMATION
  Report Type: 
  Country: None (occurrence: None)
  Receive Date: 20040908
  Receipt Date: 20040908
  Transmission Date: 20050211
  Serious: Yes (Hospitalization)
  Sender: FDA-Public Use
  Company Number: None

PATIENT

DRUGS (13)
  1. FUROSEMIDE [Suspect]
     Indication: HYPERTENSION
     Dosage: 40 MG BID
     Dates: start: 20011201
  2. ETODOLAC [Suspect]
     Indication: OSTEOARTHRITIS
     Dosage: 300 MG TID
     Dates: start: 20040201
  3. FOSINOPRIL SODIUM [Suspect]
     Indication: HYPERTENSION
     Dosage: 40 MG Q AM 20 MG Q PM
     Dates: start: 20030401
  4. BACTRIM DS [Concomitant]
  5. PERCOCET [Concomitant]
  6. NPH INSULIN [Concomitant]
  7. ASPIRIN [Concomitant]
  8. CITALOPRAM [Concomitant]
  9. CLONAZEPAM [Concomitant]
  10. FELODOPINE [Concomitant]
  11. ISOSORBIDE [Concomitant]
  12. NTC [Concomitant]
  13. AVANDIA [Concomitant]

REACTIONS (1)
  - RENAL FAILURE ACUTE [None]
